FAERS Safety Report 6524056-5 (Version None)
Quarter: 2009Q4

REPORT INFORMATION
  Report Type: 
  Country: None (occurrence: None)
  Receive Date: 20091230
  Receipt Date: 20091230
  Transmission Date: 20100525
  Serious: Yes (Other)
  Sender: FDA-Public Use
  Company Number: None

PATIENT
  Age: 87 Year
  Sex: Male
  Weight: 72 kg

DRUGS (1)
  1. CARDIOPLEGIC [Suspect]

REACTIONS (2)
  - CARDIAC DISORDER [None]
  - POST PROCEDURAL COMPLICATION [None]
